FAERS Safety Report 9474249 (Version 2)
Quarter: 2013Q3

REPORT INFORMATION
  Report Type: Spontaneous
  Country: JP (occurrence: None)
  Receive Date: 20130820
  Receipt Date: 20130927
  Transmission Date: 20140515
  Serious: Yes (Life-Threatening)
  Sender: FDA-Public Use
  Company Number: JP-20130071

PATIENT
  Age: 71 Year
  Sex: Female

DRUGS (18)
  1. LIPIODOL ULTRA FLUIDE [Suspect]
     Indication: THERAPEUTIC EMBOLISATION
     Route: 014
     Dates: start: 20130620, end: 20130620
  2. EPIRUBICIN [Suspect]
     Indication: THERAPEUTIC EMBOLISATION
     Route: 014
     Dates: start: 20130620, end: 20130620
  3. MITOMYCIN [Suspect]
     Indication: THERAPEUTIC EMBOLISATION
     Route: 014
     Dates: start: 20130620, end: 20130620
  4. DIAZEPAM (DIAZEPAM) [Suspect]
     Indication: THERAPEUTIC EMBOLISATION
     Dosage: SEDATION
     Dates: start: 20130620
  5. CEFCAPENE PIVOXIL (CEFCAPENE PIVOXIL HYDROCHLORIDE HYDRATE) [Concomitant]
  6. KETOPROFEN (KETOPROFEN) [Concomitant]
  7. URSODEOXYCHOLIC ACID (UROSDEOXYCHOLIC ACID) [Concomitant]
  8. NIFEDIPINE (NIFEDIPINE) [Concomitant]
  9. LACTATED RINGERS SOLUTION (WITH D-SORBITOL) [Concomitant]
  10. SOLDEM 3A (DEXTROSE ELECTROLYTE INFUSION) [Concomitant]
  11. HEPARIN (HEPARIN) [Concomitant]
  12. LIDOCAINE HYDROCHLORIDE MONOHYDRATE (LIDOCAINE HYDROCHLORIDE MONOHYDRATE) [Concomitant]
  13. NALOXONE HYDROCHLORIDE (NALOXONE HYDROCHLORIDE) [Concomitant]
  14. AZASETRON HYDROCHLORIDE (AZASETRON HYDROCHLORIDE) [Concomitant]
  15. PRINK (ALPROSTADIL) (ALPROSTADIL) [Concomitant]
  16. CISPLATIN (CISPLATIN) (CISPATIN) [Concomitant]
  17. PENTAZOCINE (PENTAZOCINE) (PENTAZOCINE) [Concomitant]
  18. METHYLPREDNISOLONE SODIUM SUCCINATE (METHYLPREDNISOLONE SODIUM SUCCINATE) (METHYLPREDNISOLONE SODIUM SUCCINATE) [Concomitant]

REACTIONS (5)
  - Blood pressure decreased [None]
  - Rash [None]
  - Lip oedema [None]
  - Off label use [None]
  - Hypersensitivity [None]
